FAERS Safety Report 10537100 (Version 1)
Quarter: 2014Q4

REPORT INFORMATION
  Report Type: Report from Study
  Country: PL (occurrence: PL)
  Receive Date: 20141022
  Receipt Date: 20141022
  Transmission Date: 20150529
  Serious: Yes (Death, Other)
  Sender: FDA-Public Use
  Company Number: PHHY2014PL135881

PATIENT
  Age: 67 Year
  Sex: Male

DRUGS (2)
  1. NILOTINIB [Suspect]
     Active Substance: NILOTINIB
     Dosage: 600 MG, QD
     Route: 048
  2. NILOTINIB [Suspect]
     Active Substance: NILOTINIB
     Indication: CHRONIC MYELOID LEUKAEMIA
     Dosage: 800 MG, QD
     Route: 048
     Dates: start: 20110215

REACTIONS (5)
  - Nervous system disorder [Fatal]
  - Quadriplegia [Unknown]
  - Ischaemic stroke [Unknown]
  - Central nervous system lesion [Unknown]
  - Rash [Unknown]

NARRATIVE: CASE EVENT DATE: 201310
